FAERS Safety Report 6578520-3 (Version None)
Quarter: 2010Q1

REPORT INFORMATION
  Report Type: 
  Country: None (occurrence: None)
  Receive Date: 20100211
  Receipt Date: 20100203
  Transmission Date: 20100710
  Serious: Yes (Other)
  Sender: FDA-Public Use
  Company Number: CA-JNJCH-2010001556

PATIENT
  Age: 65 Year
  Sex: Male
  Weight: 95.3 kg

DRUGS (1)
  1. ROLAIDS [Suspect]
     Indication: DYSPEPSIA
     Dosage: TEXT:UNSPECIFIED
     Route: 048

REACTIONS (11)
  - ABDOMINAL DISCOMFORT [None]
  - ABDOMINAL PAIN [None]
  - CONDITION AGGRAVATED [None]
  - DIARRHOEA [None]
  - HAEMATOCHEZIA [None]
  - HAEMORRHAGE [None]
  - MALAISE [None]
  - NAUSEA [None]
  - POLLAKIURIA [None]
  - RECURRENT CANCER [None]
  - VOMITING [None]
